FAERS Safety Report 15429679 (Version 1)
Quarter: 2018Q3

REPORT INFORMATION
  Report Type: Spontaneous
  Country: US (occurrence: US)
  Receive Date: 20180922
  Receipt Date: 20180922
  Transmission Date: 20181010
  Serious: Yes (Other)
  Sender: FDA-Public Use
  Company Number: None

PATIENT
  Age: 27 Year
  Sex: Female
  Weight: 57.6 kg

DRUGS (1)
  1. ARMODAFINIL 150MG [Suspect]
     Active Substance: ARMODAFINIL
     Indication: SHIFT WORK DISORDER
     Dosage: ?          QUANTITY:30 TABLET(S);?
     Route: 048
     Dates: start: 20180718, end: 20180912

REACTIONS (7)
  - Anxiety [None]
  - Fatigue [None]
  - Hypersomnia [None]
  - Abdominal pain upper [None]
  - Drug ineffective [None]
  - Feeling abnormal [None]
  - Product substitution issue [None]

NARRATIVE: CASE EVENT DATE: 20180723
